FAERS Safety Report 12833757 (Version 1)
Quarter: 2016Q4

REPORT INFORMATION
  Report Type: Spontaneous
  Country: PE (occurrence: PE)
  Receive Date: 20161010
  Receipt Date: 20161010
  Transmission Date: 20170207
  Serious: Yes (Death, Hospitalization)
  Sender: FDA-Public Use
  Company Number: PE-JNJFOC-20161002615

PATIENT
  Age: 29 Year
  Sex: Male
  Weight: 47 kg

DRUGS (20)
  1. BEDAQUILINE [Suspect]
     Active Substance: BEDAQUILINE
     Indication: TUBERCULOSIS
     Route: 048
     Dates: start: 20160407, end: 20160423
  2. CODEINE [Concomitant]
     Active Substance: CODEINE
     Indication: COUGH
     Route: 042
     Dates: start: 20160407, end: 20160408
  3. CLOFAZIMINE [Suspect]
     Active Substance: CLOFAZIMINE
     Indication: TUBERCULOSIS
     Route: 048
     Dates: start: 20160407, end: 20160423
  4. AMIKACIN [Suspect]
     Active Substance: AMIKACIN
     Indication: TUBERCULOSIS
     Route: 030
     Dates: start: 20160407, end: 20160423
  5. TRANEXAMIC ACID. [Concomitant]
     Active Substance: TRANEXAMIC ACID
     Indication: HAEMOPTYSIS
     Route: 048
     Dates: start: 20160415, end: 20160418
  6. TRAMADOL. [Concomitant]
     Active Substance: TRAMADOL
     Indication: PAIN
     Route: 058
     Dates: start: 20160407, end: 20160419
  7. PARA-AMINOSALICYLIC ACID [Suspect]
     Active Substance: AMINOSALICYLIC ACID
     Indication: TUBERCULOSIS
     Route: 048
     Dates: start: 20160407, end: 20160423
  8. CODEINE [Concomitant]
     Active Substance: CODEINE
     Indication: COUGH
     Route: 042
     Dates: start: 20160419, end: 20160419
  9. CODEINE [Concomitant]
     Active Substance: CODEINE
     Indication: HAEMOPTYSIS
     Route: 042
     Dates: start: 20160407, end: 20160408
  10. CODEINE [Concomitant]
     Active Substance: CODEINE
     Indication: HAEMOPTYSIS
     Route: 042
     Dates: start: 20160419, end: 20160419
  11. CODEINE [Concomitant]
     Active Substance: CODEINE
     Indication: HAEMOPTYSIS
     Route: 042
     Dates: start: 20160407, end: 20160418
  12. FERROUS SULFATE. [Concomitant]
     Active Substance: FERROUS SULFATE
     Indication: ANAEMIA
     Route: 048
     Dates: start: 20160407, end: 20160419
  13. CODEINE [Concomitant]
     Active Substance: CODEINE
     Indication: HAEMOPTYSIS
     Route: 042
     Dates: start: 20160416, end: 20160418
  14. LINEZOLID. [Suspect]
     Active Substance: LINEZOLID
     Indication: TUBERCULOSIS
     Route: 048
     Dates: start: 20160407, end: 20160423
  15. FLUCONAZOLE. [Concomitant]
     Active Substance: FLUCONAZOLE
     Indication: PYOPNEUMOTHORAX
     Route: 048
     Dates: start: 20160407, end: 20160409
  16. IBUPROFEN. [Concomitant]
     Active Substance: IBUPROFEN
     Indication: PAIN
     Route: 048
     Dates: start: 20160413, end: 20160419
  17. CYCLOSERINE. [Suspect]
     Active Substance: CYCLOSERINE
     Indication: TUBERCULOSIS
     Route: 048
     Dates: start: 20160407, end: 20160423
  18. RISPERIDONE. [Concomitant]
     Active Substance: RISPERIDONE
     Indication: SUBSTANCE ABUSE
     Route: 048
     Dates: start: 20160407, end: 20160419
  19. CODEINE [Concomitant]
     Active Substance: CODEINE
     Indication: COUGH
     Route: 042
     Dates: start: 20160407, end: 20160418
  20. TRANEXAMIC ACID. [Concomitant]
     Active Substance: TRANEXAMIC ACID
     Indication: HAEMOPTYSIS
     Route: 042
     Dates: start: 20160407, end: 20160414

REACTIONS (1)
  - Acute respiratory failure [Fatal]

NARRATIVE: CASE EVENT DATE: 20160423
